FAERS Safety Report 12889072 (Version 1)
Quarter: 2016Q4

REPORT INFORMATION
  Report Type: Spontaneous
  Country: JP (occurrence: JP)
  Receive Date: 20161027
  Receipt Date: 20161027
  Transmission Date: 20170207
  Serious: Yes (Other)
  Sender: FDA-Public Use
  Company Number: JP-PFIZER INC-2016487610

PATIENT
  Age: 80 Year
  Sex: Female

DRUGS (8)
  1. GRANISETRON HYDROCHLORIDE. [Concomitant]
     Active Substance: GRANISETRON HYDROCHLORIDE
     Indication: ACUTE MYELOID LEUKAEMIA
     Dosage: 200 UG/M2, CYCLIC (1 CYCLE, 200 UG/M2/DAY ? 10 DAYS)
  2. ACLARUBICIN HYDROCHLORIDE [Suspect]
     Active Substance: ACLARUBICIN HYDROCHLORIDE
     Indication: ACUTE MYELOID LEUKAEMIA
     Dosage: 14 MG/M2, CYCLIC (14 MG/M2/DAY)
  3. CYTARABINE. [Suspect]
     Active Substance: CYTARABINE
     Indication: ACUTE MYELOID LEUKAEMIA
     Dosage: 20 MG/M2, CYCLIC (TWO CYCLES OF LOW-DOSE (20 MG/M2/DAY))
  4. ACLARUBICIN HYDROCHLORIDE [Suspect]
     Active Substance: ACLARUBICIN HYDROCHLORIDE
     Dosage: 14 MG/M2, CYCLIC (1 CYCLE, 14 MG/M2/DAY ? 3 DAYS)
  5. CYTARABINE. [Suspect]
     Active Substance: CYTARABINE
     Dosage: 20 MG/M2, CYCLIC (1 CYCLE, 20 MG/M2/DAY ? 10 DAYS)
  6. ACLARUBICIN HYDROCHLORIDE [Suspect]
     Active Substance: ACLARUBICIN HYDROCHLORIDE
     Dosage: UNK, CYCLIC (3 DAYS IN EACH CYCLE)
  7. AZACITIDINE. [Suspect]
     Active Substance: AZACITIDINE
     Indication: ACUTE MYELOID LEUKAEMIA
     Dosage: 75 MG/M2, CYCLIC (1 CYCLE, 75 MG/M2/DAY ? 7 DAYS)
  8. CYTARABINE. [Suspect]
     Active Substance: CYTARABINE
     Dosage: UNK, CYCLIC (5 DAYS IN EACH CYCLE)

REACTIONS (2)
  - Second primary malignancy [Unknown]
  - Chloroma [Unknown]
